FAERS Safety Report 24038682 (Version 1)
Quarter: 2024Q3

REPORT INFORMATION
  Report Type: Report from Study
  Country: GB (occurrence: GB)
  Receive Date: 20240702
  Receipt Date: 20240702
  Transmission Date: 20241016
  Serious: No
  Sender: ROCHE
  Company Number: GB-ROCHE-10000007898

PATIENT
  Age: 38 Year
  Sex: Male

DRUGS (1)
  1. OCREVUS [Suspect]
     Active Substance: OCRELIZUMAB
     Indication: Multiple sclerosis
     Dosage: MORE DOSAGE INFORMATION:  1ST SPLIT LOADING DOSE
     Route: 042
     Dates: start: 20240619

REACTIONS (6)
  - Nausea [Recovered/Resolved]
  - Oral herpes [Recovering/Resolving]
  - Lip scab [Recovering/Resolving]
  - Malaise [Unknown]
  - Cold sweat [Unknown]
  - Heart rate increased [Unknown]

NARRATIVE: CASE EVENT DATE: 20240619
